FAERS Safety Report 8849960 (Version 1)
Quarter: 2012Q4

REPORT INFORMATION
  Report Type: 
  Country: US (occurrence: US)
  Receive Date: 20121019
  Receipt Date: 20121019
  Transmission Date: 20130627
  Serious: Yes (Other)
  Sender: FDA-Public Use
  Company Number: US-PFIZER INC-2005103625

PATIENT
  Age: 54 Year
  Sex: Female
  Weight: 50 kg

DRUGS (7)
  1. PROVERA [Suspect]
     Indication: HORMONE REPLACEMENT THERAPY
     Dosage: UNK
     Route: 048
     Dates: start: 1989, end: 1996
  2. PREMARIN [Suspect]
     Indication: HORMONE REPLACEMENT THERAPY
     Dosage: 0.625 mg, UNK
     Route: 048
     Dates: start: 1991, end: 1996
  3. PREMARIN [Suspect]
     Dosage: 1 mg, UNK
     Route: 048
  4. MEDROXYPROGESTERONE ACETATE [Suspect]
     Indication: HORMONE REPLACEMENT THERAPY
     Dosage: 2.5mg;10mg
     Route: 048
     Dates: start: 1991, end: 1996
  5. MEDROXYPROGESTERONE ACETATE [Suspect]
     Indication: HORMONE REPLACEMENT THERAPY
     Dosage: UNK
     Dates: start: 1991, end: 1993
  6. FLORINEF [Concomitant]
     Indication: ADRENALECTOMY
     Dosage: UNK
     Dates: start: 19870614
  7. HYDROCORTISONE [Concomitant]
     Indication: ADRENALECTOMY
     Dosage: UNK
     Dates: start: 19870614

REACTIONS (1)
  - Invasive ductal breast carcinoma [Unknown]
